FAERS Safety Report 8725380 (Version 4)
Quarter: 2012Q4

REPORT INFORMATION
  Report Type: 
  Country: US (occurrence: US)
  Receive Date: 20120815
  Receipt Date: 20121207
  Transmission Date: 20130627
  Serious: Yes (Hospitalization, Other)
  Sender: FDA-Public Use
  Company Number: US-ENDO PHARMACEUTICALS INC.-OPCR20121730

PATIENT
  Age: 29 Year
  Sex: Female

DRUGS (1)
  1. OPANA ER [Suspect]
     Indication: DRUG ABUSE
     Dosage: UNKNOWN
     Dates: start: 2012

REACTIONS (5)
  - Thrombocytopenia [Unknown]
  - Staphylococcal sepsis [Unknown]
  - Urinary tract infection [Unknown]
  - Drug abuse [Unknown]
  - Wrong technique in drug usage process [Unknown]
